FAERS Safety Report 14674636 (Version 3)
Quarter: 2018Q2

REPORT INFORMATION
  Report Type: Spontaneous
  Country: AU (occurrence: IN)
  Receive Date: 20180323
  Receipt Date: 20180405
  Transmission Date: 20180711
  Serious: Yes (Disabling, Other)
  Sender: FDA-Public Use
  Company Number: AU-REGENERON PHARMACEUTICALS, INC.-2018-19139

PATIENT

DRUGS (11)
  1. EYLEA [Suspect]
     Active Substance: AFLIBERCEPT
     Dosage: UNK, ONCE (3RD INJECTION LEFT EYE)
     Dates: start: 20171117, end: 20171117
  2. EYLEA [Suspect]
     Active Substance: AFLIBERCEPT
     Dosage: UNK, ONCE (4TH INJECTION LEFT EYE)
     Dates: start: 20171215, end: 20171215
  3. NEXIUM [Concomitant]
     Active Substance: ESOMEPRAZOLE MAGNESIUM
     Indication: PRODUCT USED FOR UNKNOWN INDICATION
     Dosage: 20 MG, QD
  4. EYLEA [Suspect]
     Active Substance: AFLIBERCEPT
     Dosage: UNK, ONCE (5TH INJECTION LEFT EYE)
     Dates: start: 20180116, end: 20180116
  5. VITAMIN D [Concomitant]
     Active Substance: CHOLECALCIFEROL
     Indication: PRODUCT USED FOR UNKNOWN INDICATION
  6. GINSENG                            /01384001/ [Concomitant]
     Active Substance: ASIAN GINSENG
     Indication: PRODUCT USED FOR UNKNOWN INDICATION
  7. EYLEA [Suspect]
     Active Substance: AFLIBERCEPT
     Indication: NEOVASCULAR AGE-RELATED MACULAR DEGENERATION
     Dosage: UNK, ONCE (1ST INJECTION LEFT EYE)
     Dates: start: 201709, end: 201709
  8. EYLEA [Suspect]
     Active Substance: AFLIBERCEPT
     Dosage: UNK, ONCE (6TH INJECTION LEFT EYE)
     Dates: start: 20180221, end: 20180221
  9. VITAMIN C [Concomitant]
     Active Substance: ASCORBIC ACID
     Indication: PRODUCT USED FOR UNKNOWN INDICATION
  10. COCONUT OIL [Concomitant]
     Active Substance: COCONUT OIL
     Indication: PRODUCT USED FOR UNKNOWN INDICATION
  11. EYLEA [Suspect]
     Active Substance: AFLIBERCEPT
     Dosage: UNK, ONCE (2ND INJECTION LEFT EYE)
     Dates: start: 20171020, end: 20171020

REACTIONS (26)
  - Ulcerative keratitis [Recovering/Resolving]
  - Inappropriate schedule of drug administration [Unknown]
  - Eye irritation [Recovered/Resolved]
  - Malaise [Recovered/Resolved]
  - Eye injury [Recovering/Resolving]
  - Rhinorrhoea [Recovered/Resolved]
  - Feeling hot [Recovered/Resolved]
  - Head discomfort [Recovered/Resolved]
  - Rhinorrhoea [Recovering/Resolving]
  - Fall [Unknown]
  - Mass [Unknown]
  - Eye injury [Unknown]
  - Sinus disorder [Recovered/Resolved]
  - Malaise [Recovered/Resolved]
  - Rhinorrhoea [Unknown]
  - Contusion [Unknown]
  - Head discomfort [Recovered/Resolved]
  - Malaise [Recovered/Resolved]
  - Blindness unilateral [Unknown]
  - Sinus disorder [Unknown]
  - Malaise [Unknown]
  - Eye pain [Recovering/Resolving]
  - Eye disorder [Recovered/Resolved]
  - Rhinorrhoea [Recovered/Resolved]
  - Emotional distress [Recovered/Resolved]
  - Head discomfort [Recovering/Resolving]

NARRATIVE: CASE EVENT DATE: 201709
